FAERS Safety Report 26058867 (Version 2)
Quarter: 2025Q4

REPORT INFORMATION
  Report Type: Spontaneous
  Country: TW (occurrence: TW)
  Receive Date: 20251118
  Receipt Date: 20251125
  Transmission Date: 20260117
  Serious: Yes (Death, Life-Threatening)
  Sender: TEVA
  Company Number: TW-TEVA-VS-3393660

PATIENT
  Age: 42 Year
  Sex: Female

DRUGS (4)
  1. DOCETAXEL [Suspect]
     Active Substance: DOCETAXEL
     Indication: Angiosarcoma
     Route: 065
  2. CABOZANTINIB [Suspect]
     Active Substance: CABOZANTINIB
     Indication: Angiosarcoma
     Route: 065
  3. GEMCITABINE [Suspect]
     Active Substance: GEMCITABINE
     Indication: Angiosarcoma
     Route: 065
  4. NIVOLUMAB [Suspect]
     Active Substance: NIVOLUMAB
     Indication: Angiosarcoma
     Route: 065

REACTIONS (1)
  - Drug ineffective [Fatal]
